FAERS Safety Report 6532091-6 (Version None)
Quarter: 2010Q1

REPORT INFORMATION
  Report Type: 
  Country: None (occurrence: None)
  Receive Date: 20100107
  Receipt Date: 20100107
  Transmission Date: 20100710
  Serious: No
  Sender: FDA-Public Use
  Company Number: None

PATIENT
  Age: 48 Year
  Sex: Female
  Weight: 56.6996 kg

DRUGS (1)
  1. OXYCONTIN [Suspect]
     Indication: BACK PAIN
     Dosage: 3-4 MONTHS
     Dates: start: 19970501, end: 19970901

REACTIONS (5)
  - FOOD CRAVING [None]
  - HYPOTHYROIDISM [None]
  - MALAISE [None]
  - NO THERAPEUTIC RESPONSE [None]
  - RASH [None]
